FAERS Safety Report 7648905-2 (Version None)
Quarter: 2011Q3

REPORT INFORMATION
  Report Type: 
  Country: None (occurrence: None)
  Receive Date: 20110801
  Receipt Date: 20110727
  Transmission Date: 20111222
  Serious: Yes (Hospitalization)
  Sender: FDA-Public Use
  Company Number: IT-MERCK-1107ITA00057

PATIENT
  Age: 61 Year
  Sex: Female

DRUGS (14)
  1. JANUVIA [Suspect]
     Indication: TYPE 2 DIABETES MELLITUS
     Route: 048
     Dates: start: 20080101, end: 20110722
  2. ZOCOR [Suspect]
     Indication: DYSLIPIDAEMIA
     Route: 048
     Dates: start: 20110622, end: 20110719
  3. ALLOPURINOL [Concomitant]
     Route: 048
  4. PANTOPRAZOLE SODIUM [Concomitant]
     Route: 048
  5. ASPIRIN [Concomitant]
     Route: 048
  6. OCTREOTIDE [Concomitant]
     Route: 030
  7. REPAGLINIDE [Concomitant]
     Route: 048
  8. OMEGA-3 ACID ETHYL ESTERS [Concomitant]
     Route: 065
  9. CHOLECALCIFEROL [Concomitant]
     Route: 048
  10. CLOPIDOGREL BISULFATE [Concomitant]
     Route: 048
  11. AMLODIPINE BESYLATE [Concomitant]
     Indication: HYPERTENSION
     Route: 048
  12. BISOPROLOL FUMARATE [Concomitant]
     Route: 048
  13. METFORMIN [Concomitant]
     Route: 048
  14. PRAVASTATIN SODIUM [Concomitant]
     Route: 048
     Dates: start: 20110101, end: 20110622

REACTIONS (1)
  - RHABDOMYOLYSIS [None]
